FAERS Safety Report 7686266-3 (Version None)
Quarter: 2011Q3

REPORT INFORMATION
  Report Type: 
  Country: None (occurrence: None)
  Receive Date: 20110816
  Receipt Date: 20101101
  Transmission Date: 20111222
  Serious: No
  Sender: FDA-Public Use
  Company Number: US-GLAXOSMITHKLINE-A0891207A

PATIENT
  Sex: Male
  Weight: 77.3 kg

DRUGS (1)
  1. TAGAMET [Suspect]
     Indication: GASTROINTESTINAL DISORDER
     Route: 065
     Dates: start: 19920101

REACTIONS (12)
  - DRUG INEFFECTIVE [None]
  - STRESS [None]
  - VOMITING [None]
  - GASTRIC DISORDER [None]
  - MOOD SWINGS [None]
  - HORMONE LEVEL ABNORMAL [None]
  - ABDOMINAL SYMPTOM [None]
  - WEIGHT INCREASED [None]
  - ABDOMINAL PAIN [None]
  - ABASIA [None]
  - GENERAL PHYSICAL HEALTH DETERIORATION [None]
  - MENTAL STATUS CHANGES [None]
